FAERS Safety Report 17179735 (Version 1)
Quarter: 2019Q4

REPORT INFORMATION
  Report Type: Spontaneous
  Country: US (occurrence: US)
  Receive Date: 20191220
  Receipt Date: 20191220
  Transmission Date: 20200122
  Serious: No
  Sender: FDA-Public Use
  Company Number: US-ACCORD-094077

PATIENT
  Age: 34 Year
  Sex: Male
  Weight: 68.04 kg

DRUGS (2)
  1. FINASTERIDE. [Suspect]
     Active Substance: FINASTERIDE
     Indication: ALOPECIA
     Dosage: CUTTING THE TABLET IN QUARTERS AND TAKING 1/4 OF THE TABLET ONCE A DAY
     Route: 048
     Dates: start: 20180530
  2. THYROID [Concomitant]
     Active Substance: LEVOTHYROXINE\LIOTHYRONINE

REACTIONS (4)
  - Erectile dysfunction [Not Recovered/Not Resolved]
  - Condition aggravated [Not Recovered/Not Resolved]
  - Loss of libido [Not Recovered/Not Resolved]
  - Wrong technique in product usage process [Unknown]
